FAERS Safety Report 21560110 (Version 1)
Quarter: 2022Q4

REPORT INFORMATION
  Report Type: Spontaneous
  Country: DE (occurrence: DE)
  Receive Date: 20221107
  Receipt Date: 20221107
  Transmission Date: 20230113
  Serious: Yes (Hospitalization)
  Sender: FDA-Public Use
  Company Number: DE-ADRED-07472-01

PATIENT
  Age: 67 Year
  Sex: Male
  Weight: 80 kg

DRUGS (10)
  1. CARBIDOPA\LEVODOPA [Suspect]
     Active Substance: CARBIDOPA\LEVODOPA
     Indication: Product used for unknown indication
     Dosage: 25/100 MG, 0-0-1-0, RETARD-TABLET
     Route: 048
  2. CARBIDOPA\ENTACAPONE\LEVODOPA [Interacting]
     Active Substance: CARBIDOPA\ENTACAPONE\LEVODOPA
     Indication: Product used for unknown indication
     Dosage: 25|200|100 MG, 1-1-1-1, TABLET
     Route: 048
  3. ROPINIROLE [Interacting]
     Active Substance: ROPINIROLE
     Indication: Product used for unknown indication
     Dosage: 4 MG, 1-0-0-0, TABLET
     Route: 048
  4. RIVASTIGMINE [Interacting]
     Active Substance: RIVASTIGMINE
     Indication: Product used for unknown indication
     Dosage: 4.6 MG, 1-0-0-0, PATCH TRANSDERMAL
     Route: 062
  5. DOMPERIDONE [Interacting]
     Active Substance: DOMPERIDONE
     Indication: Product used for unknown indication
     Dosage: 10 MG, 1-1-1-0, SUSPENSION
     Route: 048
  6. SCOPOLAMINE [Interacting]
     Active Substance: SCOPOLAMINE
     Indication: Product used for unknown indication
     Dosage: 0.33 MG, ACCORDING TO REGIMEN
     Route: 062
  7. BENSERAZIDE\LEVODOPA [Interacting]
     Active Substance: BENSERAZIDE\LEVODOPA
     Indication: Product used for unknown indication
     Dosage: 25/100 MG, 1-0-0-0, TABLET
     Route: 048
  8. ESOMEPRAZOLE [Concomitant]
     Active Substance: ESOMEPRAZOLE
     Dosage: 40 MG, 1-0-0-0
     Route: 048
  9. CHOLECALCIFEROL [Concomitant]
     Active Substance: CHOLECALCIFEROL
     Dosage: 1000 IE, 1-0-0-0
     Route: 048
  10. FOLIC ACID [Concomitant]
     Active Substance: FOLIC ACID
     Dosage: 5 MG, 1-0-0-0
     Route: 048

REACTIONS (8)
  - Disturbance in attention [Unknown]
  - Craniocerebral injury [Unknown]
  - Aspiration [Unknown]
  - Thrombocytopenia [Unknown]
  - Fall [Unknown]
  - Vomiting [Unknown]
  - Labelled drug-drug interaction medication error [Unknown]
  - Incorrect product dosage form administered [Unknown]
